FAERS Safety Report 13051642 (Version 1)
Quarter: 2016Q4

REPORT INFORMATION
  Report Type: Spontaneous
  Country: DE (occurrence: DE)
  Receive Date: 20161221
  Receipt Date: 20161221
  Transmission Date: 20170207
  Serious: Yes (Other)
  Sender: FDA-Public Use
  Company Number: DE-PFIZER INC-2016588698

PATIENT
  Age: 16 Year
  Sex: Female

DRUGS (1)
  1. LEIOS [Suspect]
     Active Substance: ETHINYL ESTRADIOL\LEVONORGESTREL
     Dosage: UNK
     Dates: start: 2015

REACTIONS (2)
  - Hypothyroidism [Unknown]
  - Weight decreased [Unknown]
